FAERS Safety Report 9365401 (Version 1)
Quarter: 2013Q2

REPORT INFORMATION
  Report Type: Report from Study
  Country: US (occurrence: US)
  Receive Date: 20130625
  Receipt Date: 20130625
  Transmission Date: 20140414
  Serious: Yes (Hospitalization)
  Sender: FDA-Public Use
  Company Number: US-ROCHE-1179659

PATIENT
  Age: 66 Year
  Sex: Female
  Weight: 52 kg

DRUGS (3)
  1. BEVACIZUMAB [Suspect]
     Indication: OVARIAN EPITHELIAL CANCER
     Dosage: LAST ADMINISTERED ON 06/DEC/2012
     Route: 042
     Dates: start: 20121005
  2. PACLITAXEL [Suspect]
     Indication: OVARIAN EPITHELIAL CANCER
     Dosage: LAST DOSE ADMINISTERED : 06/DEC/2012
     Route: 042
     Dates: start: 20121005
  3. CARBOPLATIN [Suspect]
     Indication: OVARIAN EPITHELIAL CANCER
     Dosage: LAST DOSE ADMINISTERED: 06/DEC/2012
     Route: 042
     Dates: start: 20121005

REACTIONS (1)
  - Amnesia [Recovering/Resolving]
